FAERS Safety Report 23873175 (Version 1)
Quarter: 2024Q2

REPORT INFORMATION
  Report Type: Spontaneous
  Country: US (occurrence: None)
  Receive Date: 20240517
  Receipt Date: 20240517
  Transmission Date: 20240715
  Serious: No
  Sender: FDA-Public Use
  Company Number: None

PATIENT
  Age: 58 Year
  Sex: Female
  Weight: 68.85 kg

DRUGS (1)
  1. SULFAMETHOXAZOLE\TRIMETHOPRIM [Suspect]
     Active Substance: SULFAMETHOXAZOLE\TRIMETHOPRIM
     Indication: Abdominal abscess
     Dosage: 1 TABLET TWICE A DAY ORAL?
     Route: 048
     Dates: start: 20240509, end: 20240513

REACTIONS (9)
  - Myalgia [None]
  - Chills [None]
  - Pyrexia [None]
  - Asthenia [None]
  - Rash [None]
  - Decreased appetite [None]
  - Yellow skin [None]
  - Arthralgia [None]
  - Middle insomnia [None]

NARRATIVE: CASE EVENT DATE: 20240513
